FAERS Safety Report 4481217-7 (Version None)
Quarter: 2004Q4

REPORT INFORMATION
  Report Type: 
  Country: None (occurrence: None)
  Receive Date: 20040923
  Receipt Date: 20040629
  Transmission Date: 20050328
  Serious: No
  Sender: FDA-Public Use
  Company Number: USA040157213

PATIENT
  Age: 80 Year
  Sex: Female
  Weight: 64 kg

DRUGS (5)
  1. FORTEO [Suspect]
     Indication: OSTEOPOROSIS
     Dates: start: 20031019
  2. FOSAMAX [Concomitant]
  3. HYDROCHLOROTHIAZIDE [Concomitant]
  4. POTASSIUM [Concomitant]
  5. MULTIVITAMIN [Concomitant]

REACTIONS (6)
  - ARTHRITIS [None]
  - HYPOAESTHESIA ORAL [None]
  - INJECTION SITE HAEMORRHAGE [None]
  - ORAL MUCOSAL DISORDER [None]
  - PARAESTHESIA [None]
  - TOOTH REPAIR [None]
